FAERS Safety Report 25575845 (Version 1)
Quarter: 2025Q3

REPORT INFORMATION
  Report Type: Spontaneous
  Country: GB (occurrence: GB)
  Receive Date: 20250718
  Receipt Date: 20250718
  Transmission Date: 20251021
  Serious: Yes (Hospitalization, Other)
  Sender: AUROBINDO
  Company Number: GB-MHRA-MED-202507062106518160-WRDPG

PATIENT
  Age: 1 Year
  Sex: Female

DRUGS (1)
  1. CEPHALEXIN [Suspect]
     Active Substance: CEPHALEXIN
     Indication: Prophylaxis
     Dosage: 12.5 MILLIGRAM/KILOGRAM, ONCE A DAY (CEFALEXIN 12.5MG/KG ONCE DAILY (250MG/5ML SUSPENSION)
     Route: 065

REACTIONS (1)
  - Febrile convulsion [Unknown]

NARRATIVE: CASE EVENT DATE: 20240209
